FAERS Safety Report 8854295 (Version 1)
Quarter: 2012Q4

REPORT INFORMATION
  Report Type: Spontaneous
  Country: US (occurrence: None)
  Receive Date: 20121022
  Receipt Date: 20121022
  Transmission Date: 20130627
  Serious: Yes (Other)
  Sender: FDA-Public Use
  Company Number: None

PATIENT
  Age: 52 Year
  Sex: Female
  Weight: 70.2 kg

DRUGS (26)
  1. HERCEPTIN [Suspect]
     Indication: HER-2 POSITIVE BREAST CANCER
     Route: 042
     Dates: start: 20120308, end: 20120517
  2. HERCEPTIN [Suspect]
     Indication: BREAST CANCER STAGE II
     Route: 042
     Dates: start: 20120308, end: 20120517
  3. HERCEPTIN [Suspect]
     Indication: HER-2 POSITIVE BREAST CANCER
     Route: 042
     Dates: start: 20120308, end: 20120517
  4. HERCEPTIN [Suspect]
     Indication: BREAST CANCER STAGE II
     Route: 042
     Dates: start: 20120308, end: 20120517
  5. HERCEPTIN [Suspect]
     Indication: HER-2 POSITIVE BREAST CANCER
  6. HERCEPTIN [Suspect]
     Indication: BREAST CANCER STAGE II
  7. HERCEPTIN [Suspect]
     Indication: HER-2 POSITIVE BREAST CANCER
  8. HERCEPTIN [Suspect]
     Indication: BREAST CANCER STAGE II
  9. HERCEPTIN [Suspect]
     Indication: HER-2 POSITIVE BREAST CANCER
     Route: 042
     Dates: start: 202405, end: 20120906
  10. HERCEPTIN [Suspect]
     Indication: BREAST CANCER STAGE II
     Route: 042
     Dates: start: 202405, end: 20120906
  11. HERCEPTIN [Suspect]
     Indication: HER-2 POSITIVE BREAST CANCER
     Route: 042
     Dates: start: 202405, end: 20120906
  12. HERCEPTIN [Suspect]
     Indication: BREAST CANCER STAGE II
     Route: 042
     Dates: start: 202405, end: 20120906
  13. HERCEPTIN [Suspect]
     Indication: HER-2 POSITIVE BREAST CANCER
     Dates: start: 2012
  14. HERCEPTIN [Suspect]
     Indication: BREAST CANCER STAGE II
     Dates: start: 2012
  15. HERCEPTIN [Suspect]
     Indication: HER-2 POSITIVE BREAST CANCER
     Dates: start: 2012
  16. HERCEPTIN [Suspect]
     Indication: BREAST CANCER STAGE II
     Dates: start: 2012
  17. DOXORUBICIN [Concomitant]
  18. CYCLOPHOSPHAMIDE [Concomitant]
  19. PACLITAXEL [Concomitant]
  20. PEGFILGRASTIM [Concomitant]
  21. TRASTUZUMAB [Concomitant]
  22. MULTIVITAMIN [Concomitant]
  23. AMBIEN [Concomitant]
  24. CETIRIZINE [Concomitant]
  25. CIPRO [Concomitant]
  26. LAMISIL [Concomitant]

REACTIONS (1)
  - Ejection fraction decreased [None]
